FAERS Safety Report 4804297-5 (Version None)
Quarter: 2005Q4

REPORT INFORMATION
  Report Type: 
  Country: None (occurrence: None)
  Receive Date: 20051017
  Receipt Date: 20051011
  Transmission Date: 20060501
  Serious: Yes (Death, Life-Threatening)
  Sender: FDA-Public Use
  Company Number: 2005EU001900

PATIENT
  Age: 58 Year
  Sex: Male

DRUGS (8)
  1. FK506 (TACROLIMUS) CAPSULES [Suspect]
     Indication: LIVER TRANSPLANT
     Dosage: 3.00 MG, BID, ORAL
     Route: 048
     Dates: start: 20050626
  2. MYCOPHENOLATE MOFETIL (MYCOPHENOLATE MOFETIL) [Suspect]
     Indication: LIVER TRANSPLANT
     Dosage: 1000.00 MG, BID, IV NOS
     Route: 042
     Dates: start: 20050626
  3. METHYLPREDNISOLONE [Suspect]
     Indication: LIVER TRANSPLANT
     Dosage: 500.00 MG, UID/QD
     Dates: start: 20050626, end: 20050712
  4. PREDNISONE [Suspect]
     Indication: LIVER TRANSPLANT
     Dosage: 20.00 MG UID/QD
     Dates: start: 20050626
  5. METHYLPREDNISOLONE [Suspect]
     Indication: LIVER TRANSPLANT
     Dosage: 500.00 MG, UID/QD
     Dates: start: 20050626, end: 20050712
  6. ANTITHROMBIN III (ANTITHROMBIN III) [Concomitant]
  7. TRIMETHOPRIM [Concomitant]
  8. CALCIUM (CALCIUM) [Concomitant]

REACTIONS (16)
  - ABDOMINAL INFECTION [None]
  - ASTHENIA [None]
  - BONE MARROW FAILURE [None]
  - CANDIDIASIS [None]
  - CONVULSION [None]
  - ENTEROCOCCAL INFECTION [None]
  - HAEMORRHAGE INTRACRANIAL [None]
  - HEPATIC FAILURE [None]
  - LIVER TRANSPLANT [None]
  - LIVER TRANSPLANT REJECTION [None]
  - LUNG INFECTION [None]
  - MULTI-ORGAN FAILURE [None]
  - PSEUDOMONAS INFECTION [None]
  - RENAL FAILURE [None]
  - REPERFUSION INJURY [None]
  - SEPSIS [None]
